FAERS Safety Report 20719370 (Version 1)
Quarter: 2022Q2

REPORT INFORMATION
  Report Type: Spontaneous
  Country: US (occurrence: US)
  Receive Date: 20220418
  Receipt Date: 20220418
  Transmission Date: 20220720
  Serious: No
  Sender: FDA-Public Use
  Company Number: US-OTSUKA-2022_004641

PATIENT
  Sex: Female

DRUGS (1)
  1. INQOVI [Suspect]
     Active Substance: CEDAZURIDINE\DECITABINE
     Indication: Product used for unknown indication
     Dosage: UNK INQOVI (35 MG DECITABINE AND 100 MG CEDAZURIDINE) 4 TABLETS (OF THE 5 DURING SOME OF HER CYCLES)
     Route: 065
     Dates: start: 202108

REACTIONS (2)
  - Product use issue [Unknown]
  - Therapy interrupted [Unknown]
